FAERS Safety Report 15373464 (Version 2)
Quarter: 2018Q3

REPORT INFORMATION
  Report Type: Spontaneous
  Country: US (occurrence: US)
  Receive Date: 20180912
  Receipt Date: 20180926
  Transmission Date: 20181010
  Serious: No
  Sender: FDA-Public Use
  Company Number: US-NEUROCRINE BIOSCIENCES INC.-2018NBI02553

PATIENT
  Sex: Female

DRUGS (10)
  1. LEVOTHYROXINE. [Concomitant]
     Active Substance: LEVOTHYROXINE
     Dosage: AT 7AM
     Route: 048
  2. CETIRIZINE [Concomitant]
     Active Substance: CETIRIZINE HYDROCHLORIDE
     Route: 048
  3. ABILIFY MAINTENA [Concomitant]
     Active Substance: ARIPIPRAZOLE
     Route: 030
  4. INGREZZA [Suspect]
     Active Substance: VALBENAZINE
     Indication: TARDIVE DYSKINESIA
     Route: 048
  5. CITALOPRAM [Concomitant]
     Active Substance: CITALOPRAM HYDROBROMIDE
     Route: 048
  6. OXCARBAZEPINE. [Concomitant]
     Active Substance: OXCARBAZEPINE
     Route: 048
  7. FOLIC ACID. [Concomitant]
     Active Substance: FOLIC ACID
     Route: 048
  8. NAPROXEN. [Concomitant]
     Active Substance: NAPROXEN
     Indication: PAIN
     Dosage: AS NEEDED, WITH FOOD
     Route: 048
  9. PERPHENAZINE. [Concomitant]
     Active Substance: PERPHENAZINE
     Route: 048
  10. VENTOLIN HFA [Concomitant]
     Active Substance: ALBUTEROL SULFATE
     Dosage: TWO PUFFS EVERY 4 TO 6 HOURS AS NEEDED

REACTIONS (3)
  - Abdominal pain upper [Unknown]
  - Wrong technique in product usage process [Unknown]
  - Product use complaint [Unknown]
